FAERS Safety Report 18972023 (Version 1)
Quarter: 2021Q1

REPORT INFORMATION
  Report Type: Spontaneous
  Country: CA (occurrence: CA)
  Receive Date: 20210305
  Receipt Date: 20210305
  Transmission Date: 20210420
  Serious: No
  Sender: FDA-Public Use
  Company Number: CA-JNJFOC-20210147779

PATIENT
  Sex: Male

DRUGS (1)
  1. MENS ROGAINE UNSCENTED FORMULA [Suspect]
     Active Substance: MINOXIDIL
     Indication: PRODUCT USED FOR UNKNOWN INDICATION
     Route: 061

REACTIONS (2)
  - Alopecia [Unknown]
  - Application site dryness [Recovering/Resolving]
